FAERS Safety Report 11580802 (Version 1)
Quarter: 2015Q4

REPORT INFORMATION
  Report Type: Report from Study
  Country: US (occurrence: US)
  Receive Date: 20151001
  Receipt Date: 20151001
  Transmission Date: 20160304
  Serious: No
  Sender: FDA-Public Use
  Company Number: PHEH2015US012490

PATIENT
  Age: 42 Year
  Sex: Female
  Weight: 68.27 kg

DRUGS (1)
  1. GILENYA [Suspect]
     Active Substance: FINGOLIMOD HYDROCHLORIDE
     Indication: MULTIPLE SCLEROSIS
     Dosage: 0.5 MG, QD
     Route: 048
     Dates: start: 20150617

REACTIONS (6)
  - Pain in extremity [Unknown]
  - Dyskinesia [Unknown]
  - Coordination abnormal [Unknown]
  - General symptom [Unknown]
  - Drug ineffective [Unknown]
  - Back pain [Unknown]

NARRATIVE: CASE EVENT DATE: 20150626
